FAERS Safety Report 8817722 (Version 1)
Quarter: 2012Q4

REPORT INFORMATION
  Report Type: 
  Country: FR (occurrence: FR)
  Receive Date: 20121001
  Receipt Date: 20121001
  Transmission Date: 20130627
  Serious: Yes (Hospitalization)
  Sender: FDA-Public Use
  Company Number: FR-PFIZER INC-2012238448

PATIENT
  Age: 72 Year
  Sex: Female

DRUGS (6)
  1. ALDACTONE [Suspect]
     Dosage: 75 mg, 1x/day
     Route: 048
     Dates: start: 20120802, end: 20120810
  2. TEMERIT [Concomitant]
     Dosage: 5 mg, 1x/day
     Route: 048
  3. LEVOTHYROX [Concomitant]
     Dosage: 62.5 ug, 1x/day
     Route: 048
  4. INEXIUM [Concomitant]
     Dosage: 40 mg, 1x/day
     Route: 048
  5. SPECIAFOLDINE [Concomitant]
     Dosage: 5 mg, 1x/day
     Route: 048
  6. LASILIX [Concomitant]
     Dosage: 40 mg, 1x/day
     Route: 048

REACTIONS (7)
  - Erythema [Recovered/Resolved]
  - Eczema [Recovered/Resolved]
  - Pruritus [Recovered/Resolved]
  - Mouth ulceration [Unknown]
  - Tongue injury [Recovered/Resolved]
  - Eosinophilia [Recovered/Resolved]
  - Localised oedema [Unknown]
